FAERS Safety Report 12408427 (Version 6)
Quarter: 2017Q3

REPORT INFORMATION
  Report Type: Report from Study
  Country: AU (occurrence: AU)
  Receive Date: 20160526
  Receipt Date: 20170821
  Transmission Date: 20171127
  Serious: Yes (Hospitalization, Other)
  Sender: FDA-Public Use
  Company Number: AU-REGENERON PHARMACEUTICALS, INC.-2016-17541

PATIENT

DRUGS (5)
  1. EYLEA [Suspect]
     Active Substance: AFLIBERCEPT
     Indication: NEOVASCULAR AGE-RELATED MACULAR DEGENERATION
     Dosage: 2 MG, 4 WEEKS
     Route: 031
     Dates: start: 20140826
  2. EYLEA [Suspect]
     Active Substance: AFLIBERCEPT
     Dosage: UNK, Q2MON
     Route: 031
  3. EYLEA [Suspect]
     Active Substance: AFLIBERCEPT
     Dosage: UNK, Q6WK
     Route: 031
  4. EYLEA [Suspect]
     Active Substance: AFLIBERCEPT
     Dosage: 2 MG, 10 WEEKS
     Route: 031
     Dates: start: 20140826
  5. EYLEA [Suspect]
     Active Substance: AFLIBERCEPT
     Dosage: EVERY 5 WEEKS
     Route: 031

REACTIONS (5)
  - Visual impairment [Unknown]
  - Eye haemorrhage [Unknown]
  - Diverticulitis [Unknown]
  - Visual impairment [Unknown]
  - Retinal haemorrhage [Unknown]

NARRATIVE: CASE EVENT DATE: 201602
